FAERS Safety Report 8470733-9 (Version None)
Quarter: 2012Q2

REPORT INFORMATION
  Report Type: 
  Country: None (occurrence: None)
  Receive Date: 20120627
  Receipt Date: 20120613
  Transmission Date: 20120825
  Serious: Yes (Death, Other)
  Sender: FDA-Public Use
  Company Number: US-RANBAXY-2011US-45586

PATIENT
  Sex: Female
  Weight: 54.422 kg

DRUGS (2)
  1. CLINDAMYCIN [Suspect]
     Indication: ROCKY MOUNTAIN SPOTTED FEVER
     Dosage: 150 MG, QID
     Route: 048
     Dates: start: 20110616
  2. QUALAQUIN [Suspect]
     Indication: ROCKY MOUNTAIN SPOTTED FEVER
     Dosage: 324 MG, 2 TABLETS TID
     Route: 048
     Dates: start: 20110616

REACTIONS (2)
  - HEARING IMPAIRED [None]
  - OFF LABEL USE [None]
